FAERS Safety Report 4387497-0 (Version None)
Quarter: 2004Q2

REPORT INFORMATION
  Report Type: 
  Country: None (occurrence: None)
  Receive Date: 20040630
  Receipt Date: 20040428
  Transmission Date: 20050107
  Serious: No
  Sender: FDA-Public Use
  Company Number: US-GLAXOSMITHKLINE-A0508785A

PATIENT
  Age: 76 Year
  Sex: Female

DRUGS (6)
  1. ADVAIR HFA [Suspect]
     Indication: COUGH
     Dosage: 1PUFF TWICE PER DAY
     Route: 055
     Dates: start: 20040426
  2. LANOXIN [Concomitant]
  3. MICRONASE [Concomitant]
  4. BENICAR [Concomitant]
  5. MACRODANTIN [Concomitant]
  6. CLARINEX [Concomitant]

REACTIONS (2)
  - COUGH [None]
  - HEART RATE INCREASED [None]
